FAERS Safety Report 7171131-0 (Version None)
Quarter: 2010Q4

REPORT INFORMATION
  Report Type: 
  Country: None (occurrence: None)
  Receive Date: 20101203
  Receipt Date: 20101119
  Transmission Date: 20110411
  Serious: Yes (Life-Threatening)
  Sender: FDA-Public Use
  Company Number: 010722

PATIENT
  Age: 82 Year
  Sex: Female

DRUGS (1)
  1. PLETAL [Suspect]
     Indication: CEREBRAL INFARCTION
     Dosage: 50 MG, BID, ORAL ; 50 MG, DAILY, ORAL
     Route: 048
     Dates: end: 20100607

REACTIONS (1)
  - PLATELET COUNT DECREASED [None]
